FAERS Safety Report 12165346 (Version 2)
Quarter: 2016Q2

REPORT INFORMATION
  Report Type: Report from Study
  Country: TW (occurrence: TW)
  Receive Date: 20160309
  Receipt Date: 20160429
  Transmission Date: 20160815
  Serious: Yes (Hospitalization)
  Sender: FDA-Public Use
  Company Number: TW-JNJFOC-20160300067

PATIENT
  Age: 42 Year
  Sex: Male
  Weight: 68 kg

DRUGS (11)
  1. ACETYLCYSTEINE. [Concomitant]
     Active Substance: ACETYLCYSTEINE
     Route: 048
     Dates: start: 20140917, end: 20150109
  2. LIPITOR [Concomitant]
     Active Substance: ATORVASTATIN CALCIUM
     Indication: HYPERLIPIDAEMIA
     Route: 065
     Dates: start: 20160217, end: 20160309
  3. STELARA [Suspect]
     Active Substance: USTEKINUMAB
     Indication: PSORIASIS
     Dosage: 0.5 ML
     Route: 058
     Dates: start: 20140625
  4. HARNALIDGE [Concomitant]
     Active Substance: TAMSULOSIN HYDROCHLORIDE
     Dosage: 1, QDAC
     Route: 048
     Dates: start: 20160224, end: 20160309
  5. STELARA [Suspect]
     Active Substance: USTEKINUMAB
     Indication: PSORIASIS
     Dosage: 0.5 ML
     Route: 058
     Dates: start: 20160330
  6. METHOTREXATE [Concomitant]
     Active Substance: METHOTREXATE
     Indication: PSORIASIS
     Route: 048
     Dates: start: 20060818, end: 20160203
  7. CIPROXIN [Concomitant]
     Active Substance: CIPROFLOXACIN
     Dosage: ^IVD^
     Route: 065
     Dates: start: 20160217, end: 20160221
  8. TAZOCIN [Concomitant]
     Active Substance: PIPERACILLIN SODIUM\TAZOBACTAM SODIUM
     Route: 065
     Dates: start: 20160221, end: 20160223
  9. FOLIC ACID. [Concomitant]
     Active Substance: FOLIC ACID
     Indication: PSORIATIC ARTHROPATHY
     Route: 048
     Dates: start: 20160217, end: 20160309
  10. PANTOPRAZOLE [Concomitant]
     Active Substance: PANTOPRAZOLE SODIUM
     Dosage: 1 VIAL, IVD
     Route: 065
     Dates: start: 20160217, end: 20160219
  11. CEFIXIME. [Concomitant]
     Active Substance: CEFIXIME
     Route: 065
     Dates: start: 20160223, end: 20160305

REACTIONS (4)
  - Nasopharyngitis [Not Recovered/Not Resolved]
  - Acute kidney injury [Recovered/Resolved]
  - Sepsis [Recovered/Resolved]
  - Urinary tract infection [Recovered/Resolved]

NARRATIVE: CASE EVENT DATE: 20160211
